FAERS Safety Report 4932750-2 (Version None)
Quarter: 2006Q1

REPORT INFORMATION
  Report Type: 
  Country: None (occurrence: None)
  Receive Date: 20060302
  Receipt Date: 20060302
  Transmission Date: 20060701
  Serious: No
  Sender: FDA-Public Use
  Company Number: None

PATIENT
  Sex: Male
  Weight: 88.4514 kg

DRUGS (2)
  1. ZICAM      MATRIXX INITIATIVES, IN [Suspect]
     Indication: NASOPHARYNGITIS
     Dates: start: 20060223, end: 20060223
  2. ZICAM      MATRIXX INITIATIVES, IN [Suspect]
     Indication: PROPHYLAXIS
     Dates: start: 20060223, end: 20060223

REACTIONS (5)
  - AGEUSIA [None]
  - ANOSMIA [None]
  - BURNING SENSATION [None]
  - NASAL DISCOMFORT [None]
  - SINUS DISORDER [None]
